APPROVED DRUG PRODUCT: LAMOTRIGINE
Active Ingredient: LAMOTRIGINE
Strength: 25MG
Dosage Form/Route: TABLET;ORAL
Application: A078443 | Product #001
Applicant: PHARMOBEDIENT CONSULTING LLC
Approved: Feb 11, 2009 | RLD: No | RS: No | Type: DISCN